FAERS Safety Report 17594001 (Version 1)
Quarter: 2020Q1

REPORT INFORMATION
  Report Type: Spontaneous
  Country: US (occurrence: US)
  Receive Date: 20200328
  Receipt Date: 20200328
  Transmission Date: 20200409
  Serious: No
  Sender: FDA-Public Use
  Company Number: US-DRREDDYS-USA/USA/20/0121014

PATIENT
  Age: 14 Year
  Sex: Female

DRUGS (2)
  1. OLANZAPINE FILM-COATED TABLET [Suspect]
     Active Substance: OLANZAPINE
     Indication: PRODUCT USED FOR UNKNOWN INDICATION
  2. LAMOTRIGINE TABLETS [Suspect]
     Active Substance: LAMOTRIGINE
     Indication: PRODUCT USED FOR UNKNOWN INDICATION

REACTIONS (14)
  - Crying [Unknown]
  - Gene mutation [Unknown]
  - Anxiety [Unknown]
  - Chorea [Unknown]
  - Urinary incontinence [Unknown]
  - Compulsions [Unknown]
  - Weight increased [Unknown]
  - Facial spasm [Unknown]
  - Impaired self-care [Unknown]
  - Educational problem [Unknown]
  - Neuropsychiatric syndrome [Unknown]
  - Athetosis [Unknown]
  - Myoclonus [Unknown]
  - Insomnia [Unknown]
